FAERS Safety Report 6056091-8 (Version None)
Quarter: 2009Q1

REPORT INFORMATION
  Report Type: 
  Country: None (occurrence: None)
  Receive Date: 20090128
  Receipt Date: 20090122
  Transmission Date: 20090719
  Serious: Yes (Other)
  Sender: FDA-Public Use
  Company Number: US-GILEAD-2009-0019979

PATIENT
  Age: 25 Year
  Sex: Female

DRUGS (2)
  1. TRUVADA [Suspect]
     Indication: HIV INFECTION
     Route: 048
     Dates: start: 20081027
  2. LEXIVA [Concomitant]
     Route: 048
     Dates: start: 20081027

REACTIONS (1)
  - ULTRASOUND ANTENATAL SCREEN ABNORMAL [None]
